FAERS Safety Report 6607124-9 (Version None)
Quarter: 2010Q1

REPORT INFORMATION
  Report Type: 
  Country: None (occurrence: None)
  Receive Date: 20100212
  Receipt Date: 20091125
  Transmission Date: 20100710
  Serious: Yes (Hospitalization, Other)
  Sender: FDA-Public Use
  Company Number: 1000007227

PATIENT
  Age: 52 Year
  Sex: Female
  Weight: 70.3075 kg

DRUGS (6)
  1. SAVELLA [Suspect]
     Indication: FIBROMYALGIA
     Dosage: 25 MG (12.5 MG,2 IN 1 D),ORAL
     Route: 048
     Dates: start: 20090629, end: 20090702
  2. SYNTHROID (75 MICROGRAM, TABLETS) [Concomitant]
  3. AMITIZA [Concomitant]
  4. AMBIEN [Concomitant]
  5. CLIMARA [Concomitant]
  6. ZANAFLEX [Concomitant]

REACTIONS (11)
  - BLOOD PRESSURE INCREASED [None]
  - DYSKINESIA [None]
  - DYSPNOEA [None]
  - FLUSHING [None]
  - HEART RATE INCREASED [None]
  - HYPERTENSIVE CRISIS [None]
  - HYPOAESTHESIA FACIAL [None]
  - MUSCLE RIGIDITY [None]
  - NERVOUSNESS [None]
  - SEROTONIN SYNDROME [None]
  - TREMOR [None]
